FAERS Safety Report 18932111 (Version 1)
Quarter: 2021Q1

REPORT INFORMATION
  Report Type: Spontaneous
  Country: US (occurrence: US)
  Receive Date: 20210223
  Receipt Date: 20210223
  Transmission Date: 20210420
  Serious: No
  Sender: FDA-Public Use
  Company Number: US-ROCHE-2726360

PATIENT
  Age: 8 Month
  Sex: Male

DRUGS (2)
  1. EVRYSDI [Suspect]
     Active Substance: RISDIPLAM
     Route: 065
  2. EVRYSDI [Suspect]
     Active Substance: RISDIPLAM
     Indication: PRODUCT USED FOR UNKNOWN INDICATION
     Dosage: ONGOING YES
     Route: 065
     Dates: start: 20200929

REACTIONS (1)
  - Paraesthesia oral [Unknown]

NARRATIVE: CASE EVENT DATE: 20200929
